FAERS Safety Report 7291822-0 (Version None)
Quarter: 2011Q1

REPORT INFORMATION
  Report Type: 
  Country: None (occurrence: None)
  Receive Date: 20110202
  Receipt Date: 20110113
  Transmission Date: 20110831
  Serious: Yes (Life-Threatening, Other)
  Sender: FDA-Public Use
  Company Number: 54973

PATIENT
  Sex: Female

DRUGS (1)
  1. HYLAND'S TEETHING TABLETS [Suspect]
     Indication: TEETHING
     Dosage: AS NEEDED SINCE END9/10

REACTIONS (8)
  - FLUSHING [None]
  - SWELLING [None]
  - HYPERAESTHESIA [None]
  - NASOPHARYNGITIS [None]
  - DRY SKIN [None]
  - PRODUCT QUALITY ISSUE [None]
  - CONVULSION [None]
  - AGITATION [None]
